FAERS Safety Report 4411084-9 (Version None)
Quarter: 2004Q2

REPORT INFORMATION
  Report Type: 
  Country: None (occurrence: None)
  Receive Date: 20040630
  Receipt Date: 20040421
  Transmission Date: 20050107
  Serious: No
  Sender: FDA-Public Use
  Company Number: 04P-163-0258115-00

PATIENT
  Age: 72 Year
  Sex: Male
  Weight: 99.7913 kg

DRUGS (12)
  1. HUMIRA [Suspect]
     Indication: RHEUMATOID ARTHRITIS
     Dosage: 40 MG, 1 IN 2 WK, SUBCUTANEOUS
     Route: 058
     Dates: start: 20030401, end: 20040401
  2. ASPIRIN [Concomitant]
  3. ROSIGLITAZONE MALEATE [Concomitant]
  4. RAMIPRIL [Concomitant]
  5. METHOTREXATE [Concomitant]
  6. ATORVASTATIN CALCIUM [Concomitant]
  7. FOLIC ACID [Concomitant]
  8. AVODART [Concomitant]
  9. GEMFIBROZIL [Concomitant]
  10. GLUCOPHAGE [Concomitant]
  11. CELECOXIB [Concomitant]
  12. HYDROCODONE [Concomitant]

REACTIONS (3)
  - BACK PAIN [None]
  - INTERVERTEBRAL DISC SPACE NARROWING [None]
  - WHITE BLOOD CELL COUNT DECREASED [None]
